FAERS Safety Report 9339729 (Version 1)
Quarter: 2013Q2

REPORT INFORMATION
  Report Type: Report from Study
  Country: AU (occurrence: AU)
  Receive Date: 20130610
  Receipt Date: 20130610
  Transmission Date: 20140414
  Serious: Yes (Disabling)
  Sender: FDA-Public Use
  Company Number: PHHY2013AU046395

PATIENT
  Age: 66 Year
  Sex: Female

DRUGS (7)
  1. ACLASTA [Suspect]
     Indication: OSTEOPOROSIS
     Dosage: 5 MG, UNK
     Route: 042
     Dates: start: 20110325
  2. ACLASTA [Suspect]
     Dosage: 5 MG, UNK
     Route: 042
     Dates: start: 20120307
  3. DIABEX S.R. [Concomitant]
     Dosage: 500 G, DAILY
     Dates: start: 2004
  4. LANTUS [Concomitant]
     Dosage: 14 UNITS, BID
     Dates: start: 2009
  5. COVERSYL [Concomitant]
     Dosage: 1 DF, DAILY
     Route: 048
     Dates: start: 2004
  6. NOVORAPID [Concomitant]
     Dosage: UNK, AS NEEDED
     Route: 058
     Dates: start: 2009
  7. ASTRIX [Concomitant]
     Dosage: 100 MG, DAILY
     Route: 048
     Dates: start: 2004

REACTIONS (2)
  - Facial pain [Unknown]
  - Protein total decreased [Unknown]
